FAERS Safety Report 9579231 (Version 1)
Quarter: 2013Q4

REPORT INFORMATION
  Report Type: Spontaneous
  Country: US (occurrence: US)
  Receive Date: 20131001
  Receipt Date: 20131001
  Transmission Date: 20140711
  Serious: No
  Sender: FDA-Public Use
  Company Number: US-AMGEN-USASP2013017284

PATIENT
  Age: 47 Year
  Sex: Female
  Weight: 138.32 kg

DRUGS (8)
  1. ENBREL [Suspect]
     Indication: RHEUMATOID ARTHRITIS
     Dosage: 50 MG, QWK
     Route: 058
  2. GABAPENTIN [Concomitant]
     Dosage: 100 MG, UNK
  3. VENLAFAXINE [Concomitant]
     Dosage: 37.5 MG, UNK
  4. LEVOTHYROXIN [Concomitant]
     Dosage: 100 MUG, UNK
  5. ALLOPURINOL [Concomitant]
     Dosage: 100 MG, UNK
  6. SULFASALAZIN [Concomitant]
     Dosage: 500 MG, UNK
  7. VITAMIN D                          /00107901/ [Concomitant]
     Dosage: 400 UNIT, UNK
  8. FOLIC ACID [Concomitant]
     Dosage: 20 MG, UNK

REACTIONS (1)
  - Injection site pain [Unknown]
